FAERS Safety Report 15418904 (Version 2)
Quarter: 2018Q4

REPORT INFORMATION
  Report Type: Report from Study
  Country: US (occurrence: US)
  Receive Date: 20180924
  Receipt Date: 20181114
  Transmission Date: 20190204
  Serious: Yes (Other)
  Sender: FDA-Public Use
  Company Number: PHEH2018US039628

PATIENT
  Sex: Female

DRUGS (2)
  1. COSENTYX [Suspect]
     Active Substance: SECUKINUMAB
     Indication: ANKYLOSING SPONDYLITIS
     Dosage: 300 MG, QMO
     Route: 058
     Dates: start: 201710
  2. COSENTYX [Suspect]
     Active Substance: SECUKINUMAB
     Indication: OSTEOPOROSIS

REACTIONS (3)
  - Lip swelling [Unknown]
  - Rash [Unknown]
  - Pharyngitis streptococcal [Unknown]
